FAERS Safety Report 6345656-1 (Version None)
Quarter: 2009Q3

REPORT INFORMATION
  Report Type: 
  Country: None (occurrence: None)
  Receive Date: 20090909
  Receipt Date: 20090827
  Transmission Date: 20100115
  Serious: Yes (Other)
  Sender: FDA-Public Use
  Company Number: PH-PFIZER INC-2009261376

PATIENT

DRUGS (1)
  1. DILANTIN [Suspect]

REACTIONS (2)
  - LYMPHADENITIS [None]
  - PYOMYOSITIS [None]
